FAERS Safety Report 16864441 (Version 1)
Quarter: 2019Q3

REPORT INFORMATION
  Report Type: Spontaneous
  Country: US (occurrence: US)
  Receive Date: 20190928
  Receipt Date: 20190928
  Transmission Date: 20191005
  Serious: Yes (Other)
  Sender: FDA-Public Use
  Company Number: US-PRINSTON PHARMACEUTICAL INC.-2019PRN00822

PATIENT
  Age: 82 Year
  Sex: Female
  Weight: 81.63 kg

DRUGS (3)
  1. UNSPECIFIED THYROID MEDICATION [Concomitant]
     Active Substance: UNSPECIFIED INGREDIENT
     Dosage: UNK, 1X/DAY
  2. LOSARTAN POTASSIUM. [Suspect]
     Active Substance: LOSARTAN POTASSIUM
     Indication: HYPERTENSION
     Dosage: 50 MG, 1X/DAY
     Route: 048
     Dates: start: 20190813, end: 20190917
  3. UNSPECIFIED ANTIHISTAMINE [Concomitant]
     Active Substance: ANTIHISTAMINES NOS
     Dosage: UNK, AS NEEDED

REACTIONS (6)
  - Presyncope [Recovered/Resolved]
  - Urinary tract infection [Not Recovered/Not Resolved]
  - Dysuria [Not Recovered/Not Resolved]
  - Product dose omission [Recovered/Resolved]
  - Lower respiratory tract infection [Recovering/Resolving]
  - Dizziness [Recovered/Resolved]

NARRATIVE: CASE EVENT DATE: 2019
